FAERS Safety Report 7313792-9 (Version None)
Quarter: 2011Q1

REPORT INFORMATION
  Report Type: 
  Country: None (occurrence: None)
  Receive Date: 20110225
  Receipt Date: 20110215
  Transmission Date: 20110831
  Serious: Yes (Other)
  Sender: FDA-Public Use
  Company Number: JP-PFIZER INC-2011027448

PATIENT
  Age: 83 Year
  Sex: Male

DRUGS (6)
  1. LYRICA [Suspect]
     Indication: POST HERPETIC NEURALGIA
     Dosage: UNK
     Route: 048
     Dates: start: 20110101
  2. EPADEL [Concomitant]
     Indication: HYPERLIPIDAEMIA
     Dosage: 2 DF, 2X/DAY
     Route: 048
     Dates: start: 20050101
  3. HALCION [Concomitant]
     Indication: INSOMNIA
     Dosage: 1 DF, 1X/DAY
     Route: 048
     Dates: start: 20050101
  4. VALTREX [Concomitant]
     Indication: POST HERPETIC NEURALGIA
     Dosage: UNK
  5. ASPIRIN [Concomitant]
     Indication: ANGINA PECTORIS
     Dosage: 1 DF, 1X/DAY
     Route: 048
     Dates: start: 20050101
  6. PANALDINE [Concomitant]
     Indication: ANGINA PECTORIS
     Dosage: 1 DF, 2X/DAY
     Route: 048
     Dates: start: 20050101

REACTIONS (1)
  - CARDIAC FAILURE CONGESTIVE [None]
